FAERS Safety Report 21331223 (Version 2)
Quarter: 2022Q3

REPORT INFORMATION
  Report Type: Spontaneous
  Country: CA (occurrence: CA)
  Receive Date: 20220914
  Receipt Date: 20220926
  Transmission Date: 20221026
  Serious: Yes (Other)
  Sender: FDA-Public Use
  Company Number: CA-CELLTRION INC.-2022CA014649

PATIENT

DRUGS (3)
  1. INFLECTRA [Suspect]
     Active Substance: INFLIXIMAB-DYYB
     Indication: Colitis ulcerative
     Dosage: 5 MG/KG, WEEK 0,2,6 THEN Q 8 WEEKS
     Route: 042
     Dates: start: 20220719
  2. INFLECTRA [Suspect]
     Active Substance: INFLIXIMAB-DYYB
     Dosage: 5 MG/KG, WEEK 0,2,6 THEN Q 8 WEEKS
     Route: 042
     Dates: start: 20220803
  3. INFLECTRA [Suspect]
     Active Substance: INFLIXIMAB-DYYB
     Dosage: 5 MG/KG, WEEK 0,2,6 THEN Q 8 WEEKS
     Route: 042
     Dates: start: 20220831

REACTIONS (1)
  - Hernia [Not Recovered/Not Resolved]

NARRATIVE: CASE EVENT DATE: 20220101
